FAERS Safety Report 11048314 (Version 2)
Quarter: 2015Q2

REPORT INFORMATION
  Report Type: Spontaneous
  Country: RU (occurrence: RU)
  Receive Date: 20150420
  Receipt Date: 20150501
  Transmission Date: 20150821
  Serious: No
  Sender: FDA-Public Use
  Company Number: RU-B.I. PHARMACEUTICALS,INC./RIDGEFIELD-2015-BI-19546RZ

PATIENT
  Sex: Male

DRUGS (6)
  1. PRONORAN [Concomitant]
     Indication: PARKINSONISM
     Route: 048
  2. CORONAL [Concomitant]
     Indication: CARDIOVASCULAR DISORDER
     Dosage: 5 MG
     Route: 065
  3. MIRAPEX [Suspect]
     Active Substance: PRAMIPEXOLE DIHYDROCHLORIDE
     Indication: PARKINSONISM
     Dosage: 0.75 MG
     Route: 048
     Dates: start: 20150404, end: 20150404
  4. MIRAPEX [Suspect]
     Active Substance: PRAMIPEXOLE DIHYDROCHLORIDE
     Dosage: 0.625 MG
     Route: 048
     Dates: start: 20150405, end: 20150405
  5. MIRAPEX [Suspect]
     Active Substance: PRAMIPEXOLE DIHYDROCHLORIDE
     Dosage: 0.625 MG
     Route: 048
     Dates: start: 20150405, end: 20150405
  6. LEVODOPA [Concomitant]
     Active Substance: LEVODOPA
     Indication: PARKINSONISM
     Route: 065

REACTIONS (4)
  - Headache [Not Recovered/Not Resolved]
  - Speech disorder [Not Recovered/Not Resolved]
  - Suffocation feeling [Not Recovered/Not Resolved]
  - Oedema peripheral [Not Recovered/Not Resolved]

NARRATIVE: CASE EVENT DATE: 20150404
